FAERS Safety Report 9687474 (Version 1)
Quarter: 2013Q4

REPORT INFORMATION
  Report Type: Spontaneous
  Country: US (occurrence: US)
  Receive Date: 20131114
  Receipt Date: 20131114
  Transmission Date: 20140711
  Serious: No
  Sender: FDA-Public Use
  Company Number: US-BIOGENIDEC-2013BI109755

PATIENT
  Sex: Female

DRUGS (6)
  1. AVONEX [Suspect]
     Indication: MULTIPLE SCLEROSIS
     Route: 030
     Dates: start: 2002, end: 2007
  2. AVONEX [Suspect]
     Indication: MULTIPLE SCLEROSIS
     Route: 030
     Dates: start: 20131002
  3. COPAXONE [Concomitant]
  4. REBIF [Concomitant]
  5. BETASERON [Concomitant]
  6. GILENYA [Concomitant]

REACTIONS (2)
  - Nuclear magnetic resonance imaging abnormal [Unknown]
  - Lymphadenopathy [Unknown]
